FAERS Safety Report 6777924-3 (Version None)
Quarter: 2010Q2

REPORT INFORMATION
  Report Type: 
  Country: None (occurrence: None)
  Receive Date: 20100618
  Receipt Date: 20100610
  Transmission Date: 20101027
  Serious: Yes (Hospitalization)
  Sender: FDA-Public Use
  Company Number: GB-BIOGENIDEC-2010BI019535

PATIENT
  Age: 34 Year
  Sex: Female

DRUGS (4)
  1. TYSABRI [Suspect]
     Indication: MULTIPLE SCLEROSIS
     Route: 042
     Dates: start: 20090303
  2. PROPRANOLOL [Concomitant]
     Indication: TREMOR
  3. OXYBUTYNIN CHLORIDE [Concomitant]
     Indication: BLADDER DISORDER
  4. CITALOPRAM HYDROBROMIDE [Concomitant]

REACTIONS (1)
  - CONVULSION [None]
